FAERS Safety Report 5737764-0 (Version None)
Quarter: 2008Q2

REPORT INFORMATION
  Report Type: 
  Country: None (occurrence: None)
  Receive Date: 20080514
  Receipt Date: 20080508
  Transmission Date: 20081010
  Serious: Yes (Hospitalization, Other)
  Sender: FDA-Public Use
  Company Number: BR-AVENTIS-200813755GDDC

PATIENT
  Age: 70 Year
  Sex: Female
  Weight: 60 kg

DRUGS (3)
  1. LANTUS [Suspect]
     Route: 058
     Dates: end: 20080423
  2. NOVOLIN R [Suspect]
     Route: 058
  3. ENALAPRIL MALEATE [Concomitant]
     Indication: BLOOD PRESSURE
     Dosage: DOSE QUANTITY: 1
     Route: 048

REACTIONS (4)
  - HYPERGLYCAEMIA [None]
  - HYPOGLYCAEMIC UNCONSCIOUSNESS [None]
  - MEDICATION ERROR [None]
  - SYNCOPE [None]
